FAERS Safety Report 9753865 (Version 2)
Quarter: 2013Q4

REPORT INFORMATION
  Report Type: Spontaneous
  Country: None (occurrence: US)
  Receive Date: 20131213
  Receipt Date: 20131213
  Transmission Date: 20140711
  Serious: No
  Sender: FDA-Public Use
  Company Number: US-GILEAD-2010-0027742

PATIENT
  Age: 77 Year
  Sex: Female

DRUGS (11)
  1. LETAIRIS [Suspect]
     Indication: PULMONARY ARTERIAL HYPERTENSION
     Route: 048
     Dates: start: 200810
  2. TYVASO [Concomitant]
  3. REVATIO [Concomitant]
  4. POTASSIUM ACETATE [Concomitant]
  5. CALTRATE [Concomitant]
  6. METOLAZONE [Concomitant]
  7. COUMADIN [Concomitant]
  8. DILTIAZEM [Concomitant]
  9. DIGOXIN [Concomitant]
  10. CENTRUM SILVER [Concomitant]
  11. FUROSEMIDE [Concomitant]

REACTIONS (1)
  - Red blood cell count decreased [Unknown]
